FAERS Safety Report 7778179-3 (Version None)
Quarter: 2011Q3

REPORT INFORMATION
  Report Type: 
  Country: None (occurrence: None)
  Receive Date: 20110926
  Receipt Date: 20110920
  Transmission Date: 20111222
  Serious: Yes (Other)
  Sender: FDA-Public Use
  Company Number: JP-BAYER-2011-088506

PATIENT
  Age: 96 Year
  Sex: Female

DRUGS (6)
  1. AMARYL [Concomitant]
     Route: 048
  2. GLUCOBAY [Suspect]
     Indication: BLOOD GLUCOSE INCREASED
     Dosage: UNK
     Route: 048
  3. GLUCOBAY [Suspect]
     Dosage: 200 MG, BID
     Route: 048
     Dates: start: 20110909, end: 20110914
  4. GLUCOBAY [Suspect]
     Dosage: 100 MG, BID
     Route: 048
  5. CARDIOVASCULAR SYSTEM DRUGS [Concomitant]
     Route: 065
  6. ANTIHYPERTENSIVES [Concomitant]
     Indication: HYPERTENSION
     Dosage: UNK
     Route: 048

REACTIONS (8)
  - DYSARTHRIA [None]
  - BLOOD PRESSURE DECREASED [None]
  - DIZZINESS [None]
  - PYELONEPHRITIS [None]
  - DIARRHOEA [None]
  - CELLULITIS [None]
  - FAECAL INCONTINENCE [None]
  - PORIOMANIA [None]
